FAERS Safety Report 9720936 (Version 1)
Quarter: 2013Q4

REPORT INFORMATION
  Report Type: Spontaneous
  Country: US (occurrence: US)
  Receive Date: 20131129
  Receipt Date: 20131129
  Transmission Date: 20140711
  Serious: Yes (Hospitalization)
  Sender: FDA-Public Use
  Company Number: US-BRISTOL-MYERS SQUIBB COMPANY-19855584

PATIENT
  Age: 27 Year
  Sex: Male
  Weight: 137 kg

DRUGS (3)
  1. ABILIFY [Suspect]
     Indication: AFFECTIVE DISORDER
     Route: 048
  2. ABILIFY MAINTENA INJECTION [Suspect]
     Indication: AFFECTIVE DISORDER
     Dates: start: 201308
  3. GEODON [Concomitant]

REACTIONS (2)
  - Psychotic disorder [Unknown]
  - Off label use [Unknown]
